FAERS Safety Report 9122710 (Version 4)
Quarter: 2014Q3

REPORT INFORMATION
  Report Type: Spontaneous
  Country: US (occurrence: US)
  Receive Date: 20130115
  Receipt Date: 20140828
  Transmission Date: 20150326
  Serious: Yes (Hospitalization, Other)
  Sender: FDA-Public Use
  Company Number: US-009507513-1301USA004614

PATIENT
  Sex: Female
  Weight: 125.17 kg

DRUGS (3)
  1. COMBIVENT [Concomitant]
     Active Substance: ALBUTEROL SULFATE\IPRATROPIUM BROMIDE
     Dosage: UNK
     Dates: start: 2006
  2. ADVAIR HFA [Concomitant]
     Active Substance: FLUTICASONE PROPIONATE\SALMETEROL XINAFOATE
     Dosage: UNK
     Dates: start: 2006
  3. NUVARING [Suspect]
     Active Substance: ETHINYL ESTRADIOL\ETONOGESTREL
     Indication: ENDOMETRIOSIS
     Dosage: UNK
     Route: 067
     Dates: start: 20091217, end: 201001

REACTIONS (16)
  - Blood glucose increased [Recovering/Resolving]
  - Radiculopathy [Unknown]
  - Headache [Unknown]
  - Nausea [Unknown]
  - Medication overuse headache [Unknown]
  - Depression [Unknown]
  - Pulmonary mass [Unknown]
  - Ovarian cyst [Unknown]
  - Off label use [Unknown]
  - Hypoaesthesia [Recovered/Resolved]
  - Vomiting [Unknown]
  - Intracranial pressure increased [Unknown]
  - Pulmonary embolism [Unknown]
  - Asthma [Not Recovered/Not Resolved]
  - VIIth nerve paralysis [Unknown]
  - Benign intracranial hypertension [Unknown]

NARRATIVE: CASE EVENT DATE: 20091217
